FAERS Safety Report 6253769-8 (Version None)
Quarter: 2009Q2

REPORT INFORMATION
  Report Type: 
  Country: None (occurrence: None)
  Receive Date: 20090630
  Receipt Date: 20090618
  Transmission Date: 20091009
  Serious: Yes (Hospitalization)
  Sender: FDA-Public Use
  Company Number: DE-2009-1239

PATIENT
  Age: 65 Year
  Sex: Male
  Weight: 87 kg

DRUGS (11)
  1. NAVELBINE [Suspect]
     Indication: NON-SMALL CELL LUNG CANCER
     Dosage: 40 MG IV
     Route: 042
     Dates: start: 20090416, end: 20090519
  2. NAVELBINE [Suspect]
     Indication: NON-SMALL CELL LUNG CANCER
     Dosage: 20 MG IV
     Route: 042
     Dates: start: 20090519, end: 20090519
  3. CISPLATIN [Suspect]
     Indication: NON-SMALL CELL LUNG CANCER
     Dosage: 99 MG
     Dates: start: 20090416, end: 20090422
  4. CISPLATIN [Suspect]
     Indication: NON-SMALL CELL LUNG CANCER
     Dosage: 50 MG
     Dates: start: 20090514, end: 20090519
  5. PACLITAXEL [Suspect]
     Indication: NON-SMALL CELL LUNG CANCER
     Dates: start: 20090201, end: 20090323
  6. CLEXANE. MFR: NOT SPECIFIED [Concomitant]
  7. PANTOZOL. MFR: NOT SPECIFIED [Concomitant]
  8. TEPILTA [Concomitant]
  9. MOVICOL. MFR: NOT SPECIFIED [Concomitant]
  10. DIFLUCAN. MFR: NOT SPECIFIED [Concomitant]
  11. TALVOSILEN [Concomitant]

REACTIONS (5)
  - ANAEMIA [None]
  - DYSPHAGIA [None]
  - HYPOPHAGIA [None]
  - OESOPHAGEAL CANDIDIASIS [None]
  - PNEUMONIA [None]
